FAERS Safety Report 7222044-7 (Version None)
Quarter: 2011Q1

REPORT INFORMATION
  Report Type: 
  Country: None (occurrence: None)
  Receive Date: 20110112
  Receipt Date: 20110104
  Transmission Date: 20110831
  Serious: Yes (Hospitalization)
  Sender: FDA-Public Use
  Company Number: PHHY2009FR11424

PATIENT
  Age: 60 Year
  Sex: Male

DRUGS (3)
  1. SERETIDE [Concomitant]
  2. GLEEVEC [Suspect]
     Indication: CHRONIC MYELOID LEUKAEMIA
     Dosage: 400MG/DAY
     Dates: start: 20040704
  3. XATRAL [Concomitant]

REACTIONS (1)
  - PROSTATE CANCER [None]
